FAERS Safety Report 12611222 (Version 1)
Quarter: 2016Q3

REPORT INFORMATION
  Report Type: Spontaneous
  Country: US (occurrence: US)
  Receive Date: 20160801
  Receipt Date: 20160801
  Transmission Date: 20161109
  Serious: No
  Sender: FDA-Public Use
  Company Number: US-BAYER-2016-141809

PATIENT
  Age: 97 Year
  Sex: Female
  Weight: 49.43 kg

DRUGS (7)
  1. OMEGA 3 [Concomitant]
     Active Substance: OMEGA-3 FATTY ACIDS
  2. OS-CAL [CALCIUM CARBONATE,COLECALCIFEROL] [Concomitant]
  3. DILTIAZEM. [Concomitant]
     Active Substance: DILTIAZEM
  4. MIRALAX [Suspect]
     Active Substance: POLYETHYLENE GLYCOL 3350
     Indication: CONSTIPATION
     Dosage: UNK UNK, QD
     Route: 048
     Dates: end: 20160718
  5. SYNTHROID [Concomitant]
     Active Substance: LEVOTHYROXINE SODIUM
  6. CLARITIN [Concomitant]
     Active Substance: LORATADINE
  7. DONA [Concomitant]

REACTIONS (5)
  - Hypersensitivity [Not Recovered/Not Resolved]
  - Nausea [None]
  - Dizziness [Not Recovered/Not Resolved]
  - Chest pain [Not Recovered/Not Resolved]
  - Product use issue [None]

NARRATIVE: CASE EVENT DATE: 20160715
